FAERS Safety Report 7241874-9 (Version None)
Quarter: 2011Q1

REPORT INFORMATION
  Report Type: 
  Country: None (occurrence: None)
  Receive Date: 20110124
  Receipt Date: 20110111
  Transmission Date: 20110831
  Serious: Yes (Hospitalization)
  Sender: FDA-Public Use
  Company Number: CA-BRISTOL-MYERS SQUIBB COMPANY-15474083

PATIENT
  Age: 51 Year
  Sex: Female
  Weight: 47 kg

DRUGS (4)
  1. FRAGMIN [Concomitant]
     Indication: DEEP VEIN THROMBOSIS
     Route: 065
  2. FLUOROURACIL [Suspect]
     Indication: HEAD AND NECK CANCER
     Dosage: INF:3:20DEC2010
     Route: 042
     Dates: start: 20101101, end: 20101220
  3. CISPLATIN [Suspect]
     Indication: HEAD AND NECK CANCER
     Dosage: INF:3:20DEC2010
     Route: 042
     Dates: start: 20101101, end: 20101220
  4. CETUXIMAB [Suspect]
     Indication: HEAD AND NECK CANCER
     Dosage: 591 MG, DAY 1 AND 369 MG DAY 8 AND 15. INTERR ON 20DEC2010(49DAYS) 20DEC2010(INF:8)
     Route: 042
     Dates: start: 20101101

REACTIONS (2)
  - ABDOMINAL PAIN [None]
  - PNEUMATOSIS INTESTINALIS [None]
